FAERS Safety Report 5311060-8 (Version None)
Quarter: 2007Q2

REPORT INFORMATION
  Report Type: 
  Country: None (occurrence: None)
  Receive Date: 20070430
  Receipt Date: 20070419
  Transmission Date: 20071010
  Serious: Yes (Other)
  Sender: FDA-Public Use
  Company Number: US-JNJFOC-20070404365

PATIENT
  Age: 4 Year
  Sex: Female
  Weight: 21.32 kg

DRUGS (1)
  1. RISPERDAL [Suspect]
     Indication: AUTISM
     Route: 048

REACTIONS (4)
  - DECREASED APPETITE [None]
  - LETHARGY [None]
  - PYREXIA [None]
  - SURGERY [None]
